FAERS Safety Report 9596188 (Version 7)
Quarter: 2014Q1

REPORT INFORMATION
  Report Type: Spontaneous
  Country: JP (occurrence: JP)
  Receive Date: 20131004
  Receipt Date: 20140227
  Transmission Date: 20141002
  Serious: Yes (Hospitalization, Congenital Anomaly)
  Sender: FDA-Public Use
  Company Number: JP-ABBVIE-12P-087-1029431-00

PATIENT
  Age: 0 Day
  Sex: Male

DRUGS (1)
  1. HUMIRA [Suspect]
     Indication: MATERNAL EXPOSURE TIMING UNSPECIFIED
     Route: 064

REACTIONS (4)
  - Congenital anomaly [Unknown]
  - Foetal heart rate deceleration abnormality [Recovering/Resolving]
  - Foetal disorder [Recovering/Resolving]
  - Foetal exposure during pregnancy [Unknown]
